FAERS Safety Report 8808811 (Version 1)
Quarter: 2012Q4

REPORT INFORMATION
  Report Type: Spontaneous
  Country: US (occurrence: None)
  Receive Date: 20120925
  Receipt Date: 20120925
  Transmission Date: 20130627
  Serious: Yes (Hospitalization)
  Sender: FDA-Public Use
  Company Number: DL2012-0766

PATIENT
  Age: 21 Year
  Sex: Female

DRUGS (4)
  1. MIFEPRISTONE [Suspect]
     Indication: TERMINATION OF PREGNANCY
     Route: 048
     Dates: start: 20120824
  2. MISOPROSTOL [Suspect]
     Route: 002
     Dates: start: 20120825
  3. MISOPROSTOL [Suspect]
     Dates: start: 20120829
  4. DOXYCYCLINE [Concomitant]

REACTIONS (3)
  - Abortion incomplete [None]
  - Haemorrhage [None]
  - Anaemia [None]
